FAERS Safety Report 4450983-9 (Version None)
Quarter: 2004Q3

REPORT INFORMATION
  Report Type: 
  Country: None (occurrence: None)
  Receive Date: 20040916
  Receipt Date: 20040302
  Transmission Date: 20050211
  Serious: Yes (Other)
  Sender: FDA-Public Use
  Company Number: US-BRISTOL-MYERS SQUIBB COMPANY-12523437

PATIENT
  Age: 29 Year
  Sex: Male

DRUGS (11)
  1. STADOL [Suspect]
     Dosage: DOSING: 10MG/ML
     Route: 045
  2. STADOL [Suspect]
     Dosage: DOSING: 10MG/ML
  3. ACETAMINOPHEN W/ PROPOXYPHENE HCL [Concomitant]
  4. PROMETHAZINE HCL [Concomitant]
  5. MEPROZINE [Concomitant]
  6. ACETAMINOPHEN W/ CODEINE [Concomitant]
  7. PAXIL [Concomitant]
  8. HYDROXYZINE HCL [Concomitant]
  9. DARVOCET [Concomitant]
  10. LOTRISONE [Concomitant]
  11. IBUPROFEN [Concomitant]

REACTIONS (1)
  - DEPENDENCE [None]
